FAERS Safety Report 8501892-7 (Version None)
Quarter: 2012Q3

REPORT INFORMATION
  Report Type: 
  Country: None (occurrence: None)
  Receive Date: 20120711
  Receipt Date: 20120705
  Transmission Date: 20120928
  Serious: Yes (Other)
  Sender: FDA-Public Use
  Company Number: PHHY2012BR048933

PATIENT
  Sex: Female

DRUGS (7)
  1. CRESTOR [Concomitant]
     Indication: BLOOD CHOLESTEROL ABNORMAL
     Dosage: 1 DF, QD
     Route: 048
  2. METFORMIN HCL [Concomitant]
     Indication: DIABETES MELLITUS
     Dosage: 1 DF, QD
     Route: 048
  3. VECASTEN [Concomitant]
     Indication: PAIN IN EXTREMITY
     Dosage: 1 DF, QD
     Route: 048
  4. HEPARIN [Concomitant]
     Indication: PAIN IN EXTREMITY
     Route: 061
  5. AMLODOPINE BESYLATE AND VALSARTAN [Suspect]
     Indication: HYPERTENSION
     Dosage: 1 DF(VALS 160 MG AND AMLO 5 MG), QD
  6. AMLODOPINE BESYLATE AND VALSARTAN [Suspect]
     Dosage: 1 DF(VALS 320 MG AND AMLO 10 MG), QD
  7. VENALOT H [Concomitant]
     Indication: PAIN IN EXTREMITY
     Route: 061

REACTIONS (2)
  - HYPERTENSION [None]
  - BLOOD PRESSURE DIASTOLIC DECREASED [None]
